FAERS Safety Report 8995854 (Version 1)
Quarter: 2013Q1

REPORT INFORMATION
  Report Type: Spontaneous
  Country: US (occurrence: US)
  Receive Date: 20130103
  Receipt Date: 20130103
  Transmission Date: 20140127
  Serious: Yes (Death)
  Sender: FDA-Public Use
  Company Number: US-B.I. PHARMACEUTICALS,INC./RIDGEFIELD-2012-BI-04651BP

PATIENT
  Age: 53 Year
  Sex: Female

DRUGS (2)
  1. SPIRIVA [Suspect]
  2. COMBIVENT [Suspect]

REACTIONS (1)
  - Road traffic accident [Fatal]
